FAERS Safety Report 19932450 (Version 1)
Quarter: 2021Q4

REPORT INFORMATION
  Report Type: Spontaneous
  Country: CN (occurrence: CN)
  Receive Date: 20211008
  Receipt Date: 20211008
  Transmission Date: 20220303
  Serious: Yes (Death, Other)
  Sender: FDA-Public Use
  Company Number: 2021A759994

PATIENT
  Age: 60 Year
  Sex: Male

DRUGS (8)
  1. GEFITINIB [Suspect]
     Active Substance: GEFITINIB
     Indication: Lung adenocarcinoma stage III
     Route: 048
     Dates: start: 20171128
  2. OSIMERTINIB [Suspect]
     Active Substance: OSIMERTINIB
     Indication: Lung adenocarcinoma stage III
     Route: 048
     Dates: start: 20181017
  3. AFATINIB [Suspect]
     Active Substance: AFATINIB
     Indication: Lung adenocarcinoma stage III
     Route: 065
     Dates: start: 201805
  4. CRIZOTINIB [Suspect]
     Active Substance: CRIZOTINIB
     Indication: Lung adenocarcinoma stage III
     Route: 048
     Dates: start: 20181017
  5. CISPLATIN\PEMETREXED [Concomitant]
     Active Substance: CISPLATIN\PEMETREXED
     Indication: Chemotherapy
     Dosage: SIX CYCLES PEMETREXED 500MG/M2, DAY 1 PLUS CISPLATIN 75MG/M2 DAY 1, EVERY 3WEEKS)
     Dates: start: 20170701
  6. CISPLATIN\PEMETREXED [Concomitant]
     Active Substance: CISPLATIN\PEMETREXED
     Indication: Chemotherapy
     Dosage: TWO CYCLES PEMETREXED 500MG/M2, DAY 1 PLUS CISPLATIN 75MG/M2 DAY 1, EVERY 3WEEKS
     Dates: start: 201806
  7. CISPLATIN\PEMETREXED [Concomitant]
     Active Substance: CISPLATIN\PEMETREXED
     Indication: Chemotherapy
     Dosage: TWO CYCLES PEMETREXED 500MG/M2, DAY 1 PLUS CISPLATIN 75MG/M2 DAY 1, EVERY 3WEEKS
     Dates: start: 201807
  8. BEVACIZUMAB [Concomitant]
     Active Substance: BEVACIZUMAB
     Dosage: TWO CYCLES
     Dates: start: 201807, end: 201808

REACTIONS (6)
  - Drug resistance [Unknown]
  - Treatment failure [Unknown]
  - Acquired gene mutation [Unknown]
  - Malignant neoplasm progression [Unknown]
  - Metastases to central nervous system [Unknown]
  - Metastases to bone [Unknown]

NARRATIVE: CASE EVENT DATE: 20180401
